FAERS Safety Report 24878666 (Version 2)
Quarter: 2025Q3

REPORT INFORMATION
  Report Type: Report from Study
  Country: ZA (occurrence: SA)
  Receive Date: 20250123
  Receipt Date: 20250803
  Transmission Date: 20251021
  Serious: Yes (Hospitalization)
  Sender: ALEXION PHARMACEUTICALS
  Company Number: ZA-AstraZeneca-CH-00788530A

PATIENT
  Age: 88 Year
  Sex: Male

DRUGS (8)
  1. DAPAGLIFLOZIN [Suspect]
     Active Substance: DAPAGLIFLOZIN
     Indication: Diabetes mellitus
  2. LEVOTHYROXINE [Concomitant]
     Active Substance: LEVOTHYROXINE
     Indication: Hypothyroidism
  3. DONEPEZIL HYDROCHLORIDE [Concomitant]
     Active Substance: DONEPEZIL HYDROCHLORIDE
     Indication: Dementia Alzheimer^s type
  4. QUETIAPINE [Concomitant]
     Active Substance: QUETIAPINE
     Indication: Mental disorder
  5. RIVAROXABAN [Concomitant]
     Active Substance: RIVAROXABAN
     Indication: Coagulopathy
  6. Serdep [Concomitant]
     Indication: Mental disorder
  7. ESOMEPRAZOLE [Concomitant]
     Active Substance: ESOMEPRAZOLE
     Indication: Gastrooesophageal reflux disease
  8. CRESTOR [Concomitant]
     Active Substance: ROSUVASTATIN CALCIUM
     Indication: Blood cholesterol

REACTIONS (2)
  - Dehydration [Unknown]
  - Oxygen saturation decreased [Unknown]
